FAERS Safety Report 4614503-8 (Version None)
Quarter: 2005Q2

REPORT INFORMATION
  Report Type: 
  Country: None (occurrence: None)
  Receive Date: 20050307
  Receipt Date: 20050107
  Transmission Date: 20051028
  Serious: No
  Sender: FDA-Public Use
  Company Number: USA041287181

PATIENT
  Age: 57 Year
  Sex: Male
  Weight: 84 kg

DRUGS (5)
  1. ALIMTA [Suspect]
     Indication: MESOTHELIOMA
     Dosage: 500 MG/M2 OTHER
     Dates: start: 20041207
  2. CISPLATIN [Concomitant]
  3. DEXAMETHASONE [Concomitant]
  4. FOLIC ACID [Concomitant]
  5. VITAMIN B-12 [Concomitant]

REACTIONS (1)
  - RASH [None]
